FAERS Safety Report 17630242 (Version 1)
Quarter: 2020Q2

REPORT INFORMATION
  Report Type: Spontaneous
  Country: US (occurrence: US)
  Receive Date: 20200406
  Receipt Date: 20200406
  Transmission Date: 20200713
  Serious: Yes (Other)
  Sender: FDA-Public Use
  Company Number: US-OXFORD PHARMACEUTICALS, LLC-2020OXF00048

PATIENT
  Age: 50 Year
  Sex: Female

DRUGS (24)
  1. DANTROLENE. [Concomitant]
     Active Substance: DANTROLENE SODIUM
  2. GLYCOPYRROLATE. [Concomitant]
     Active Substance: GLYCOPYRROLATE
  3. KETAMINE [Suspect]
     Active Substance: KETAMINE
     Dosage: BOOSTER INFUSIONS EVERY 2 MONTHS FOR 3 DAYS
  4. KETAMINE [Suspect]
     Active Substance: KETAMINE
     Dosage: 40 MG/HOUR
  5. METOCLOPERAMIDE [Concomitant]
  6. ONDANSETRON [Concomitant]
     Active Substance: ONDANSETRON
  7. RANITIDINE. [Concomitant]
     Active Substance: RANITIDINE
  8. KETAMINE [Suspect]
     Active Substance: KETAMINE
     Indication: COMPLEX REGIONAL PAIN SYNDROME
     Dosage: 3 YEARS PRIOR TO ADMISSIONUNK
  9. KETAMINE [Suspect]
     Active Substance: KETAMINE
     Dosage: 10 MG/HR; INCREASED BY 10 MG/2 HR UNTIL MAX OF 40MG/H
  10. KETOROLAC [Concomitant]
     Active Substance: KETOROLAC TROMETHAMINE
  11. DIHPENHYDRAMINE [Concomitant]
  12. KETAMINE [Suspect]
     Active Substance: KETAMINE
     Dosage: TAPERED OFF BY 10MG/H EVERY 2 HR
  13. TOPIRAMATE. [Concomitant]
     Active Substance: TOPIRAMATE
  14. LOSARTAN. [Concomitant]
     Active Substance: LOSARTAN
  15. ROSUVASTATIN. [Concomitant]
     Active Substance: ROSUVASTATIN
  16. BACLOFEN. [Suspect]
     Active Substance: BACLOFEN
     Dosage: UNK
     Route: 037
  17. KETAMINE [Suspect]
     Active Substance: KETAMINE
     Indication: PAIN
     Dosage: EVERY 6 MONTHS
  18. TIZANIDINE. [Concomitant]
     Active Substance: TIZANIDINE
  19. MIDAZOLAM. [Concomitant]
     Active Substance: MIDAZOLAM
  20. PANTOPRAZOLE [Concomitant]
     Active Substance: PANTOPRAZOLE
  21. BACLOFEN. [Suspect]
     Active Substance: BACLOFEN
     Indication: MUSCLE SPASMS
     Dosage: UNK
     Route: 048
  22. KETAMINE [Suspect]
     Active Substance: KETAMINE
     Dosage: RESTART
  23. CLONIDINE. [Concomitant]
     Active Substance: CLONIDINE
  24. APIXABAN [Concomitant]
     Active Substance: APIXABAN

REACTIONS (1)
  - Inappropriate antidiuretic hormone secretion [Recovered/Resolved]
